FAERS Safety Report 9753834 (Version 1)
Quarter: 2013Q4

REPORT INFORMATION
  Report Type: Spontaneous
  Country: US (occurrence: US)
  Receive Date: 20131213
  Receipt Date: 20131213
  Transmission Date: 20140711
  Serious: Yes (Hospitalization)
  Sender: FDA-Public Use
  Company Number: US-GILEAD-2010-0027658

PATIENT
  Sex: Female
  Weight: 106.59 kg

DRUGS (16)
  1. LETAIRIS [Suspect]
     Indication: PULMONARY ARTERIAL HYPERTENSION
     Route: 048
     Dates: start: 20090512
  2. WARFARIN [Concomitant]
  3. FUROSEMIDE [Concomitant]
  4. DIOVAN [Concomitant]
  5. ATENOLOL [Concomitant]
  6. CEPHALEXIN [Concomitant]
  7. GLIPIZIDE [Concomitant]
  8. JANUVIA [Concomitant]
  9. METFORMIN [Concomitant]
  10. LEVOTHYROXINE [Concomitant]
  11. HYDROCODONE [Concomitant]
  12. CINNAMON [Concomitant]
  13. POTASSIUM CHLORIDE [Concomitant]
  14. FERROUS SULFATE [Concomitant]
  15. VITAMIN B-12 [Concomitant]
  16. CHROMIUM [Concomitant]

REACTIONS (1)
  - Fluid retention [Unknown]
